FAERS Safety Report 5449623-1 (Version None)
Quarter: 2007Q3

REPORT INFORMATION
  Report Type: 
  Country: None (occurrence: None)
  Receive Date: 20070912
  Receipt Date: 20070905
  Transmission Date: 20080115
  Serious: Yes (Hospitalization, Other)
  Sender: FDA-Public Use
  Company Number: PHEH2007US10446

PATIENT
  Age: 70 Year
  Sex: Male
  Weight: 97.278 kg

DRUGS (2)
  1. EXJADE [Suspect]
     Indication: IRON OVERLOAD
     Dosage: 2500 MG / D, QD
     Route: 048
     Dates: start: 20070302, end: 20070521
  2. ALLOPURINOL [Concomitant]
     Indication: GOUT
     Dosage: 100 MG, QD

REACTIONS (4)
  - BLOOD CREATININE INCREASED [None]
  - BLOOD UREA INCREASED [None]
  - HAEMOGLOBIN DECREASED [None]
  - RENAL FAILURE ACUTE [None]
